FAERS Safety Report 9347915 (Version 1)
Quarter: 2013Q2

REPORT INFORMATION
  Report Type: Spontaneous
  Country: IT (occurrence: IT)
  Receive Date: 20130614
  Receipt Date: 20130614
  Transmission Date: 20140414
  Serious: Yes (Other)
  Sender: FDA-Public Use
  Company Number: IT-ROCHE-1233663

PATIENT
  Age: 49 Year
  Sex: Male

DRUGS (2)
  1. SYNFLEX (ITALY) [Suspect]
     Indication: DENTAL OPERATION
     Route: 048
     Dates: start: 20130524, end: 20130527
  2. UNIDROX [Concomitant]
     Indication: PROSTATITIS
     Route: 065

REACTIONS (2)
  - Chest pain [Recovered/Resolved]
  - Dyspnoea [Recovered/Resolved]
